FAERS Safety Report 8807376 (Version 3)
Quarter: 2012Q4

REPORT INFORMATION
  Report Type: 
  Country: AT (occurrence: AT)
  Receive Date: 20120925
  Receipt Date: 20121213
  Transmission Date: 20130627
  Serious: Yes (Hospitalization)
  Sender: FDA-Public Use
  Company Number: AT-VERTEX PHARMACEUTICAL INC.-2012-021160

PATIENT
  Age: 38 Year
  Sex: Female

DRUGS (13)
  1. INCIVEK [Suspect]
     Indication: HEPATITIS C
     Dosage: 2250 mg, qd
     Route: 048
     Dates: start: 20120606, end: 20120829
  2. PEGINTERFERON ALFA-2A [Suspect]
     Indication: HEPATITIS C
     Dosage: 180 UNK, UNK
     Route: 058
     Dates: start: 20120606, end: 20121114
  3. RIBAVIRIN [Suspect]
     Indication: HEPATITIS C
     Dosage: 1000 mg, UNK
     Route: 048
     Dates: start: 20120606, end: 20121120
  4. PASPERTIN                          /00041902/ [Concomitant]
  5. NEXIUM                             /01479302/ [Concomitant]
  6. IBUPROFEN [Concomitant]
  7. MEFENAMIC ACID [Concomitant]
  8. FLUPHENAZINE HCL [Concomitant]
  9. NEODOLPASSE [Concomitant]
  10. GRAMICIDIN W/NEOMYCIN SULF/POLYMYXIN B SULF [Concomitant]
  11. DIMENHYDRINATE [Concomitant]
  12. GRAMICIDIN W/NEOMYCIN SULF/POLYMYXIN B SULF [Concomitant]
  13. CIPRALEX [Concomitant]

REACTIONS (2)
  - Headache [Recovered/Resolved]
  - Vomiting [Recovered/Resolved]
